FAERS Safety Report 25570566 (Version 2)
Quarter: 2025Q3

REPORT INFORMATION
  Report Type: Report from Study
  Country: US (occurrence: US)
  Receive Date: 20250717
  Receipt Date: 20250808
  Transmission Date: 20251020
  Serious: Yes (Hospitalization, Other)
  Sender: Unknown Manufacturer
  Company Number: US-MTPC-MTPA2025-0012792

PATIENT
  Age: 75 Year
  Sex: Female

DRUGS (7)
  1. RADICAVA ORS [Suspect]
     Active Substance: EDARAVONE
     Dosage: 5 MILLILITER, QD 10 OUT OF 14 DAYS, 14 DAYS OFF
     Route: 048
  2. RADICAVA ORS [Suspect]
     Active Substance: EDARAVONE
     Dosage: 5 MILLILITER, QD 10 OUT OF 14 DAYS, 14 DAYS OFF
     Route: 048
  3. RADICAVA ORS [Suspect]
     Active Substance: EDARAVONE
     Indication: Amyotrophic lateral sclerosis
     Dosage: 5 MILLILITER, QD FOR 10 OUT OF 14 DAYS, 14 DAYS OFF
     Route: 048
     Dates: start: 202501
  4. RADICAVA ORS [Suspect]
     Active Substance: EDARAVONE
     Indication: Amyotrophic lateral sclerosis
     Dosage: 5 MILLILITER, QD FOR 10 OUT OF 14 DAYS, 14 DAYS OFF
     Route: 048
     Dates: start: 202501
  5. RADICAVA ORS [Suspect]
     Active Substance: EDARAVONE
     Route: 048
     Dates: start: 202502, end: 20250625
  6. RADICAVA ORS [Suspect]
     Active Substance: EDARAVONE
     Route: 048
     Dates: start: 202502, end: 20250625
  7. RILUZOLE [Suspect]
     Active Substance: RILUZOLE
     Indication: Product used for unknown indication
     Route: 065

REACTIONS (8)
  - Suffocation feeling [Unknown]
  - Malaise [Unknown]
  - Respiratory failure [Unknown]
  - Constipation [Unknown]
  - Dizziness [Unknown]
  - Fatigue [Unknown]
  - Dyspnoea [Unknown]
  - Product dose omission issue [Unknown]

NARRATIVE: CASE EVENT DATE: 20250629
